FAERS Safety Report 22387844 (Version 1)
Quarter: 2023Q2

REPORT INFORMATION
  Report Type: Spontaneous
  Country: US (occurrence: US)
  Receive Date: 20230531
  Receipt Date: 20230531
  Transmission Date: 20230722
  Serious: No
  Sender: FDA-Public Use
  Company Number: US-GALDERMA-US2023006720

PATIENT

DRUGS (1)
  1. DIFFERIN GEL [Suspect]
     Active Substance: ADAPALENE
     Indication: Product used for unknown indication
     Dosage: 1 DOSAGE FORM
     Route: 061

REACTIONS (6)
  - Application site hypersensitivity [Unknown]
  - Application site erythema [Unknown]
  - Rash papular [Unknown]
  - Application site pruritus [Unknown]
  - Application site pain [Unknown]
  - Eye swelling [Unknown]
